FAERS Safety Report 6495225-8 (Version None)
Quarter: 2009Q4

REPORT INFORMATION
  Report Type: 
  Country: None (occurrence: None)
  Receive Date: 20091214
  Receipt Date: 20090730
  Transmission Date: 20100525
  Serious: Yes (Hospitalization)
  Sender: FDA-Public Use
  Company Number: US-BRISTOL-MYERS SQUIBB COMPANY-14625529

PATIENT
  Age: 44 Year
  Sex: Female

DRUGS (5)
  1. ABILIFY [Suspect]
     Indication: MAJOR DEPRESSION
     Dosage: DURATION OVER A YEAR INCREASED TO BID ON 09NOV08
     Dates: start: 20071022
  2. TRAZODONE HCL [Suspect]
     Dosage: TAKEN 100MG
  3. FLUOXETINE [Suspect]
     Dates: start: 20080915
  4. ATIVAN [Suspect]
  5. AVELOX [Suspect]

REACTIONS (1)
  - HEPATIC ENZYME INCREASED [None]
